FAERS Safety Report 10620257 (Version 1)
Quarter: 2014Q4

REPORT INFORMATION
  Report Type: Spontaneous
  Country: US (occurrence: US)
  Receive Date: 20141202
  Receipt Date: 20141202
  Transmission Date: 20150529
  Serious: Yes (Other)
  Sender: FDA-Public Use
  Company Number: US-BAYER-2014-173109

PATIENT
  Age: 16 Year
  Sex: Female
  Weight: 45.35 kg

DRUGS (2)
  1. IRON SUPPLEMENT [Concomitant]
     Active Substance: IRON
  2. ALKA-SELTZER PLUS COLD + COUGH FORMULA CITRUS [Suspect]
     Active Substance: ASPIRIN\CHLORPHENIRAMINE MALEATE\DEXTROMETHORPHAN HYDROBROMIDE\PHENYLEPHRINE BITARTRATE
     Indication: NASOPHARYNGITIS
     Dosage: 2 DF, PRN
     Route: 048
     Dates: start: 20141117, end: 20141118

REACTIONS (1)
  - Blood urine present [Not Recovered/Not Resolved]

NARRATIVE: CASE EVENT DATE: 20141118
